FAERS Safety Report 18671187 (Version 2)
Quarter: 2020Q4

REPORT INFORMATION
  Report Type: Spontaneous
  Country: CN (occurrence: CN)
  Receive Date: 20201228
  Receipt Date: 20201231
  Transmission Date: 20210114
  Serious: Yes (Hospitalization)
  Sender: FDA-Public Use
  Company Number: CN-SA-2020SA368835

PATIENT

DRUGS (3)
  1. LANTUS SOLOSTAR [Suspect]
     Active Substance: INSULIN GLARGINE
     Indication: DIABETES MELLITUS
     Dosage: 12 IU, QD
     Route: 065
     Dates: start: 2013
  2. LANTUS SOLOSTAR [Suspect]
     Active Substance: INSULIN GLARGINE
     Dosage: ONE TIME, INJECTED TOO MUCH LANTUS SOLOSTAR (INSULIN GLARGINE INJECTION),
     Route: 065
  3. GANSULIN [Concomitant]
     Dosage: UNK
     Route: 065

REACTIONS (5)
  - Localised infection [Recovering/Resolving]
  - Blood glucose increased [Unknown]
  - Diabetic wound [Recovering/Resolving]
  - Blood glucose decreased [Recovering/Resolving]
  - Extra dose administered [Recovering/Resolving]

NARRATIVE: CASE EVENT DATE: 20201204
